FAERS Safety Report 6400942-1 (Version None)
Quarter: 2009Q4

REPORT INFORMATION
  Report Type: 
  Country: None (occurrence: None)
  Receive Date: 20091009
  Receipt Date: 20090925
  Transmission Date: 20100525
  Serious: Yes (Hospitalization)
  Sender: FDA-Public Use
  Company Number: 8052623

PATIENT
  Age: 55 Year
  Sex: Female
  Weight: 136.9 kg

DRUGS (23)
  1. CERTOLIZUMAB PEGOL [Suspect]
     Indication: RHEUMATOID ARTHRITIS
     Dosage: 400 MG /M SC
     Route: 058
  2. CERTOLIZUMAB PEGOL [Suspect]
     Indication: RHEUMATOID ARTHRITIS
     Dosage: 400 MG /M SC
     Route: 058
     Dates: start: 20030716
  3. METHOTREXATE [Concomitant]
  4. XYLOCAINE [Concomitant]
  5. TYLENOL (CAPLET) [Concomitant]
  6. FOSAMAX [Concomitant]
  7. BEXTRA /01400702/ [Concomitant]
  8. MOBIC [Concomitant]
  9. PREDNISONE [Concomitant]
  10. FOLIC ACID [Concomitant]
  11. ASPIRIN [Concomitant]
  12. CALCIUM W/MAGNESIUM [Concomitant]
  13. FLUOGEN [Concomitant]
  14. HYDROCODONE [Concomitant]
  15. HYDROCODONE COMPOUND /01224801/ [Concomitant]
  16. LYRICA [Concomitant]
  17. FLUZONE /00027001/ [Concomitant]
  18. LOVENOX [Concomitant]
  19. COUMADIN [Suspect]
  20. TAMIFLU [Concomitant]
  21. FUROSEMIDE [Concomitant]
  22. KEFLEX  /00145501/ [Concomitant]
  23. POTASSIUM CHLORIDE [Concomitant]

REACTIONS (6)
  - CONDITION AGGRAVATED [None]
  - DYSPNOEA [None]
  - INFLUENZA [None]
  - OSTEOARTHRITIS [None]
  - PULMONARY EMBOLISM [None]
  - VIRAL INFECTION [None]
